FAERS Safety Report 15977538 (Version 2)
Quarter: 2019Q1

REPORT INFORMATION
  Report Type: Spontaneous
  Country: FR (occurrence: FR)
  Receive Date: 20190218
  Receipt Date: 20190313
  Transmission Date: 20190418
  Serious: Yes (Other)
  Sender: FDA-Public Use
  Company Number: PHHY2019FR036849

PATIENT
  Age: 70 Year
  Sex: Male
  Weight: 65 kg

DRUGS (1)
  1. TOBRADEX [Suspect]
     Active Substance: DEXAMETHASONE\TOBRAMYCIN
     Indication: POSTOPERATIVE CARE
     Dosage: 5 DF, QD
     Route: 061
     Dates: start: 20190117, end: 20190206

REACTIONS (4)
  - Photophobia [Unknown]
  - Punctate keratitis [Recovering/Resolving]
  - Eye pain [Unknown]
  - Malaise [Unknown]

NARRATIVE: CASE EVENT DATE: 20190119
